FAERS Safety Report 4862987-2 (Version None)
Quarter: 2005Q4

REPORT INFORMATION
  Report Type: 
  Country: None (occurrence: None)
  Receive Date: 20051130
  Receipt Date: 20051027
  Transmission Date: 20060501
  Serious: No
  Sender: FDA-Public Use
  Company Number: FABR-11298

PATIENT
  Age: 46 Year
  Sex: Male
  Weight: 50 kg

DRUGS (2)
  1. FABRAZYME [Suspect]
     Indication: FABRY'S DISEASE
     Dosage: 1 MG/KG IV
     Route: 042
     Dates: start: 20050501
  2. FABRAZYME [Suspect]
     Indication: FABRY'S DISEASE
     Dosage: 0.5 MG/KG IV
     Route: 042
     Dates: start: 20050501

REACTIONS (2)
  - DIZZINESS [None]
  - NAUSEA [None]
